FAERS Safety Report 13314331 (Version 3)
Quarter: 2017Q1

REPORT INFORMATION
  Report Type: Report from Study
  Country: NL (occurrence: NL)
  Receive Date: 20170309
  Receipt Date: 20170323
  Transmission Date: 20170428
  Serious: Yes (Hospitalization)
  Sender: FDA-Public Use
  Company Number: NL-B.I. PHARMACEUTICALS,INC./RIDGEFIELD-2017-BI-011988

PATIENT
  Age: 62 Year
  Sex: Male
  Weight: 87.8 kg

DRUGS (12)
  1. BIBF 1120 [Suspect]
     Active Substance: NINTEDANIB
     Indication: SYSTEMIC SCLERODERMA
     Route: 048
     Dates: start: 20160426, end: 20170227
  2. FOLIC ACID. [Concomitant]
     Active Substance: FOLIC ACID
     Indication: ANAEMIA MACROCYTIC
     Route: 048
     Dates: start: 20161025
  3. PANTOPRAZOL [Concomitant]
     Active Substance: PANTOPRAZOLE SODIUM
     Indication: CHEST DISCOMFORT
     Route: 048
     Dates: start: 20161025
  4. ALENDRONATE ZUUR [Concomitant]
     Indication: PROPHYLAXIS
     Dosage: 70MG WEEKLY
     Route: 048
     Dates: start: 20140201
  5. METOPROLOL. [Concomitant]
     Active Substance: METOPROLOL
     Indication: ATRIAL FIBRILLATION
     Route: 048
     Dates: start: 20160126
  6. TOLBUTAMIDE. [Concomitant]
     Active Substance: TOLBUTAMIDE
     Indication: DIABETES MELLITUS
     Route: 048
     Dates: start: 20160626
  7. CLOPIDOGREL [Concomitant]
     Active Substance: CLOPIDOGREL BISULFATE
     Indication: CORONARY ARTERY BYPASS
     Route: 048
     Dates: start: 20140101
  8. METFORMINE [Concomitant]
     Active Substance: METFORMIN HYDROCHLORIDE
     Indication: DIABETES MELLITUS
     Route: 048
     Dates: start: 20160404
  9. RANITIDINE. [Concomitant]
     Active Substance: RANITIDINE
     Indication: GASTROOESOPHAGEAL REFLUX DISEASE
     Dosage: 150MG IF NEEDED
     Route: 048
     Dates: start: 20161207
  10. PREDNISON [Concomitant]
     Active Substance: PREDNISONE
     Indication: INTERSTITIAL LUNG DISEASE
     Route: 048
     Dates: start: 20140201
  11. CALCICHEW [Concomitant]
     Active Substance: CALCIUM CARBONATE
     Indication: PROPHYLAXIS
     Dosage: 500MG/800IE
     Route: 048
     Dates: start: 20140201
  12. HYDROXYCOBALAMIN [Concomitant]
     Indication: ANAEMIA MACROCYTIC
     Dosage: 1000MCG PER WEEK
     Route: 030
     Dates: start: 20170104

REACTIONS (2)
  - Cholecystitis [Recovered/Resolved]
  - Dyspnoea [Not Recovered/Not Resolved]

NARRATIVE: CASE EVENT DATE: 20161107
